FAERS Safety Report 9972849 (Version 3)
Quarter: 2014Q1

REPORT INFORMATION
  Report Type: Report from Study
  Country: GB (occurrence: GB)
  Receive Date: 20140306
  Receipt Date: 20140328
  Transmission Date: 20141002
  Serious: Yes (Hospitalization)
  Sender: FDA-Public Use
  Company Number: GB-JNJFOC-20140300230

PATIENT
  Age: 9 Year
  Sex: Female
  Weight: 26.5 kg

DRUGS (2)
  1. REMICADE [Suspect]
     Indication: CROHN^S DISEASE
     Route: 042
     Dates: start: 20130322
  2. AZATHIOPRINE [Concomitant]
     Route: 065

REACTIONS (1)
  - Abdominal pain [Recovered/Resolved]
